FAERS Safety Report 18845063 (Version 1)
Quarter: 2021Q1

REPORT INFORMATION
  Report Type: Report from Study
  Country: US (occurrence: US)
  Receive Date: 20210203
  Receipt Date: 20210203
  Transmission Date: 20210419
  Serious: No
  Sender: FDA-Public Use
  Company Number: US-EXELIXIS-CABO-20029197

PATIENT
  Age: 51 Year
  Sex: Male

DRUGS (10)
  1. GABAPENTIN. [Concomitant]
     Active Substance: GABAPENTIN
     Dosage: UNK
  2. CIPROFLOXACIN. [Concomitant]
     Active Substance: CIPROFLOXACIN
  3. METHYLPREDNISOLONE. [Concomitant]
     Active Substance: METHYLPREDNISOLONE
     Dosage: UNK
  4. LEVOTHYROXINE SODIUM. [Concomitant]
     Active Substance: LEVOTHYROXINE SODIUM
  5. SILVER SULFADIAZINE. [Concomitant]
     Active Substance: SILVER SULFADIAZINE
  6. CABOMETYX [Suspect]
     Active Substance: CABOZANTINIB S-MALATE
     Dosage: 60 MG, QD
     Route: 048
  7. ONDANSETRON [Concomitant]
     Active Substance: ONDANSETRON
     Dosage: UNK
  8. AMOXICILLIN + CLAV. POTASSIUM [Concomitant]
     Active Substance: AMOXICILLIN\CLAVULANATE POTASSIUM
  9. CABOMETYX [Suspect]
     Active Substance: CABOZANTINIB S-MALATE
     Indication: RENAL CANCER
     Dosage: 60 MG, QD
     Route: 048
     Dates: start: 20200411, end: 202004
  10. MINOCYCLINE [Concomitant]
     Active Substance: MINOCYCLINE HYDROCHLORIDE
     Dosage: UNK

REACTIONS (8)
  - Gastrointestinal disorder [Unknown]
  - Fatigue [Not Recovered/Not Resolved]
  - Somnolence [Unknown]
  - Abdominal pain upper [Not Recovered/Not Resolved]
  - Anxiety [Unknown]
  - Insomnia [Unknown]
  - Alopecia [Unknown]
  - Skin texture abnormal [Unknown]

NARRATIVE: CASE EVENT DATE: 202004
